FAERS Safety Report 4631138-1 (Version None)
Quarter: 2005Q2

REPORT INFORMATION
  Report Type: 
  Country: None (occurrence: None)
  Receive Date: 20050407
  Receipt Date: 20050407
  Transmission Date: 20051028
  Serious: Yes (Hospitalization)
  Sender: FDA-Public Use
  Company Number: None

PATIENT
  Age: 81 Year
  Sex: Male

DRUGS (1)
  1. AMIODARONE [Suspect]
     Dosage: INTRAVENOU
     Route: 042

REACTIONS (6)
  - EXTRAVASATION [None]
  - INFUSION SITE ERYTHEMA [None]
  - INFUSION SITE INFECTION [None]
  - INFUSION SITE SWELLING [None]
  - STAPHYLOCOCCAL INFECTION [None]
  - THROMBOPHLEBITIS [None]
